FAERS Safety Report 21625614 (Version 1)
Quarter: 2022Q4

REPORT INFORMATION
  Report Type: Spontaneous
  Country: US (occurrence: None)
  Receive Date: 20221122
  Receipt Date: 20221122
  Transmission Date: 20230113
  Serious: No
  Sender: FDA-Public Use
  Company Number: US-ROCHE-3054457

PATIENT
  Age: 62 Year
  Sex: Female
  Weight: 63.197 kg

DRUGS (3)
  1. HERCEPTIN [Suspect]
     Active Substance: TRASTUZUMAB
     Indication: HER2 positive breast cancer
     Route: 041
     Dates: start: 20220223
  2. LEVOTHYROXINE [Concomitant]
     Active Substance: LEVOTHYROXINE
     Indication: Hypothyroidism
     Route: 048
  3. OTC (UNK INGREDIENTS) [Concomitant]
     Indication: Seasonal allergy
     Route: 065

REACTIONS (7)
  - Abdominal discomfort [Recovered/Resolved]
  - Anxiety [Not Recovered/Not Resolved]
  - Epistaxis [Recovered/Resolved]
  - Chills [Not Recovered/Not Resolved]
  - Diarrhoea [Recovering/Resolving]
  - Glomerular filtration rate decreased [Not Recovered/Not Resolved]
  - Feeling cold [Not Recovered/Not Resolved]

NARRATIVE: CASE EVENT DATE: 20220224
